FAERS Safety Report 23130634 (Version 1)
Quarter: 2023Q4

REPORT INFORMATION
  Report Type: Spontaneous
  Country: FR (occurrence: FR)
  Receive Date: 20231031
  Receipt Date: 20231031
  Transmission Date: 20240110
  Serious: Yes (Hospitalization)
  Sender: FDA-Public Use
  Company Number: None

PATIENT
  Age: 3 Year
  Sex: Male
  Weight: 13 kg

DRUGS (1)
  1. SEVOFLURANE [Suspect]
     Active Substance: SEVOFLURANE
     Indication: General anaesthesia
     Dates: start: 20231016, end: 20231016

REACTIONS (1)
  - Delayed recovery from anaesthesia [Recovered/Resolved]

NARRATIVE: CASE EVENT DATE: 20231016
